FAERS Safety Report 25453992 (Version 2)
Quarter: 2025Q3

REPORT INFORMATION
  Report Type: Report from Study
  Country: US (occurrence: US)
  Receive Date: 20250619
  Receipt Date: 20250803
  Transmission Date: 20251020
  Serious: Yes (Other)
  Sender: ALEXION PHARMACEUTICALS
  Company Number: 202506USA013980US

PATIENT
  Sex: Female

DRUGS (2)
  1. OLAPARIB [Suspect]
     Active Substance: OLAPARIB
     Indication: Ovarian cancer
     Dosage: 150 MILLIGRAM, BID
     Dates: start: 20250304
  2. OLAPARIB [Suspect]
     Active Substance: OLAPARIB
     Dosage: 125 MILLIGRAM, BID
     Dates: start: 202506

REACTIONS (5)
  - Hernia [Unknown]
  - Fatigue [Recovering/Resolving]
  - Red blood cell abnormality [Unknown]
  - Arthralgia [Not Recovered/Not Resolved]
  - White blood cell disorder [Unknown]
